FAERS Safety Report 5914728-5 (Version None)
Quarter: 2008Q4

REPORT INFORMATION
  Report Type: 
  Country: None (occurrence: None)
  Receive Date: 20081010
  Receipt Date: 20080929
  Transmission Date: 20090506
  Serious: Yes (Life-Threatening, Disabling, Other)
  Sender: FDA-Public Use
  Company Number: US-JNJFOC-20080905724

PATIENT
  Age: 4 Year
  Sex: Female

DRUGS (1)
  1. FENTANYL TRANSDERMAL SYSTEM [Suspect]
     Indication: ACCIDENTAL DRUG INTAKE BY CHILD
     Route: 065

REACTIONS (2)
  - ACCIDENTAL DRUG INTAKE BY CHILD [None]
  - ADVERSE EVENT [None]
